FAERS Safety Report 5835876-4 (Version None)
Quarter: 2008Q3

REPORT INFORMATION
  Report Type: 
  Country: None (occurrence: None)
  Receive Date: 20080806
  Receipt Date: 20080723
  Transmission Date: 20090109
  Serious: Yes (Other)
  Sender: FDA-Public Use
  Company Number: US-GENENTECH-260514

PATIENT
  Age: 88 Year
  Sex: Male

DRUGS (4)
  1. LUCENTIS [Suspect]
     Indication: MACULAR DEGENERATION
     Dosage: 0.5 MG, UNK
     Route: 031
  2. BRIMONIDINE TARTRATE [Concomitant]
     Indication: INTRAOCULAR PRESSURE INCREASED
  3. LATANOPROST [Concomitant]
     Indication: INTRAOCULAR PRESSURE INCREASED
  4. TIMOLOL MALEATE [Concomitant]
     Indication: INTRAOCULAR PRESSURE INCREASED

REACTIONS (1)
  - VISUAL ACUITY REDUCED [None]
